FAERS Safety Report 20333264 (Version 1)
Quarter: 2022Q1

REPORT INFORMATION
  Report Type: Report from Study
  Country: CA (occurrence: CA)
  Receive Date: 20220113
  Receipt Date: 20220113
  Transmission Date: 20220423
  Serious: Yes (Hospitalization)
  Sender: FDA-Public Use
  Company Number: CA-BRISTOL-MYERS SQUIBB COMPANY-BMS-2022-003620

PATIENT
  Age: 71 Year
  Sex: Female
  Weight: 82 kg

DRUGS (1)
  1. ABATACEPT [Suspect]
     Active Substance: ABATACEPT
     Indication: Rheumatoid arthritis
     Dosage: 740 MILLIGRAM, Q4WK
     Route: 042
     Dates: start: 20141031

REACTIONS (2)
  - Asthenia [Unknown]
  - Prescribed underdose [Unknown]
